FAERS Safety Report 6834969-2 (Version None)
Quarter: 2010Q3

REPORT INFORMATION
  Report Type: 
  Country: None (occurrence: None)
  Receive Date: 20100713
  Receipt Date: 20100629
  Transmission Date: 20110219
  Serious: Yes (Other)
  Sender: FDA-Public Use
  Company Number: US-BIOGENIDEC-2010BI019759

PATIENT
  Age: 48 Year
  Sex: Female

DRUGS (2)
  1. TYSABRI [Suspect]
     Indication: MULTIPLE SCLEROSIS
     Route: 042
     Dates: start: 20080505, end: 20080601
  2. TYSABRI [Suspect]
     Route: 042
     Dates: start: 20090301, end: 20100101

REACTIONS (3)
  - DRUG INEFFECTIVE [None]
  - EPILEPSY [None]
  - MULTIPLE SCLEROSIS RELAPSE [None]
